FAERS Safety Report 5385808-0 (Version None)
Quarter: 2007Q3

REPORT INFORMATION
  Report Type: 
  Country: None (occurrence: None)
  Receive Date: 20070712
  Receipt Date: 20070702
  Transmission Date: 20080115
  Serious: Yes (Hospitalization)
  Sender: FDA-Public Use
  Company Number: US-ELI_LILLY_AND_COMPANY-US200707000731

PATIENT
  Age: 63 Year
  Sex: Male
  Weight: 145.12 kg

DRUGS (9)
  1. BYETTA [Suspect]
     Indication: TYPE 2 DIABETES MELLITUS
     Dosage: 5 UG, 2/D
     Route: 048
     Dates: start: 20060909, end: 20061001
  2. BYETTA [Suspect]
     Dosage: 10 UG, 2/D
     Route: 058
     Dates: start: 20061101, end: 20071125
  3. GLIPIZIDE [Concomitant]
     Indication: DIABETES MELLITUS
     Dosage: 10 MG, EACH MORNING
  4. GLIPIZIDE [Concomitant]
     Dosage: 5 MG, EACH EVENING
  5. ATENOLOL [Concomitant]
     Indication: BLOOD PRESSURE INCREASED
     Dosage: 25 MG, 2/D
  6. VITAPLEX [Concomitant]
     Indication: EYE DISORDER
     Dosage: 1 UNK, 2/D
     Dates: start: 20060101
  7. CLONIDINE [Concomitant]
     Indication: BLOOD PRESSURE INCREASED
     Dosage: 0.1 MG, 2/D
     Dates: start: 20060101
  8. SPIRONOLACTONE [Concomitant]
     Indication: FLUID RETENTION
     Dosage: 50 MG, DAILY (1/D)
     Dates: start: 20060101
  9. DARVOCET [Concomitant]
     Indication: ARTHRALGIA
     Dosage: 650 MG, AS NEEDED
     Dates: start: 20050101

REACTIONS (3)
  - CORONARY ARTERY OCCLUSION [None]
  - MYOCARDIAL INFARCTION [None]
  - WEIGHT DECREASED [None]
